FAERS Safety Report 13280765 (Version 1)
Quarter: 2017Q1

REPORT INFORMATION
  Report Type: Spontaneous
  Country: IT (occurrence: IT)
  Receive Date: 20170301
  Receipt Date: 20170301
  Transmission Date: 20170428
  Serious: Yes (Hospitalization, Other)
  Sender: FDA-Public Use
  Company Number: IT-ACCORD-048547

PATIENT
  Age: 66 Year
  Sex: Male

DRUGS (5)
  1. VORICONAZOLE. [Interacting]
     Active Substance: VORICONAZOLE
     Indication: RENAL IMPAIRMENT
     Route: 048
  2. AMPHOTERICIN B/AMPHOTERICIN B/LIPOSOME [Suspect]
     Active Substance: AMPHOTERICIN B
     Indication: RENAL IMPAIRMENT
  3. MYCOPHENOLIC ACID. [Suspect]
     Active Substance: MYCOPHENOLIC ACID
     Indication: HEART TRANSPLANT
  4. CICLOSPORIN [Interacting]
     Active Substance: CYCLOSPORINE
     Indication: HEART TRANSPLANT
  5. PREDNISONE. [Suspect]
     Active Substance: PREDNISONE
     Indication: HEART TRANSPLANT

REACTIONS (4)
  - Brain abscess [Recovering/Resolving]
  - Aspergillus infection [Recovering/Resolving]
  - Hepatotoxicity [Recovering/Resolving]
  - Drug interaction [Unknown]
